FAERS Safety Report 4310401-8 (Version None)
Quarter: 2004Q1

REPORT INFORMATION
  Report Type: 
  Country: None (occurrence: None)
  Receive Date: 20040303
  Receipt Date: 20040106
  Transmission Date: 20041129
  Serious: Yes (Hospitalization)
  Sender: FDA-Public Use
  Company Number: PHHO2004US00641

PATIENT
  Age: 62 Year
  Sex: Female
  Weight: 185 kg

DRUGS (16)
  1. SANDOSTATIN LAR [Suspect]
     Indication: DIABETIC RETINOPATHY
     Dosage: 30 MG, UNK
     Route: 030
     Dates: start: 20020403
  2. NORVASC [Concomitant]
     Indication: HYPERTENSION
     Dates: end: 20040110
  3. OGEN [Concomitant]
     Indication: MENOPAUSAL SYMPTOMS
     Dates: end: 20040110
  4. MAXZIDE [Concomitant]
     Indication: HYPERTENSION
     Dates: end: 20040110
  5. AMARYL [Concomitant]
     Indication: DIABETES MELLITUS
  6. GLUCOPHAGE [Concomitant]
     Indication: DIABETES MELLITUS
  7. LACTULOSE [Concomitant]
     Indication: CONSTIPATION
     Dates: start: 20040110
  8. PRILOSEC [Concomitant]
     Indication: VARICES OESOPHAGEAL
     Dates: start: 20040110
  9. INDERAL [Concomitant]
     Dates: start: 20040110
  10. CIPRO [Concomitant]
     Dates: start: 20040110
  11. LASIX [Concomitant]
     Indication: FLUID RETENTION
     Dates: start: 20030130, end: 20040110
  12. AMBIEN [Concomitant]
     Indication: SLEEP DISORDER
     Dates: start: 20040108, end: 20040110
  13. LIPITOR [Concomitant]
     Indication: HEPATIC STEATOSIS
     Dates: start: 20030813, end: 20040110
  14. NEURONTIN [Concomitant]
     Indication: MUSCLE CRAMP
     Dates: start: 20030728, end: 20040110
  15. LOTENSIN [Concomitant]
     Indication: HYPERTENSION
     Dates: end: 20040110
  16. HYDROCHLOROTHIAZIDE [Concomitant]
     Indication: HYPERTENSION
     Dates: end: 20040110

REACTIONS (11)
  - ABDOMINAL PAIN [None]
  - ABDOMINAL PAIN UPPER [None]
  - ASPARTATE AMINOTRANSFERASE INCREASED [None]
  - BLOOD ALKALINE PHOSPHATASE INCREASED [None]
  - BLOOD BILIRUBIN INCREASED [None]
  - BLOOD UREA INCREASED [None]
  - COMA [None]
  - CONCOMITANT DISEASE PROGRESSION [None]
  - HEPATIC ENCEPHALOPATHY [None]
  - HEPATIC VEIN THROMBOSIS [None]
  - LETHARGY [None]
